FAERS Safety Report 8078105-6 (Version None)
Quarter: 2012Q1

REPORT INFORMATION
  Report Type: 
  Country: None (occurrence: None)
  Receive Date: 20120127
  Receipt Date: 20110317
  Transmission Date: 20120608
  Serious: Yes (Hospitalization)
  Sender: FDA-Public Use
  Company Number: US-ABBOTT-10P-163-0684207-00

PATIENT
  Sex: Female
  Weight: 65.83 kg

DRUGS (8)
  1. SYMBICORT [Concomitant]
     Indication: ASTHMA
     Route: 055
     Dates: start: 20100101
  2. ALBUTEROL [Concomitant]
     Dosage: NEBULIZER, AS NEEDED
     Route: 055
  3. METHOTREXATE [Concomitant]
     Indication: RHEUMATOID ARTHRITIS
  4. FOLIC ACID [Concomitant]
     Indication: PRODUCT USED FOR UNKNOWN INDICATION
  5. THEOPHYLLINE [Concomitant]
     Indication: ASTHMA
     Dates: end: 20101104
  6. ATACAND [Concomitant]
     Indication: HYPERTENSION
     Dates: end: 20101104
  7. ALBUTEROL [Concomitant]
     Indication: ASTHMA
     Route: 055
  8. HUMIRA [Suspect]
     Indication: RHEUMATOID ARTHRITIS
     Route: 058
     Dates: start: 20050101

REACTIONS (1)
  - ATRIAL FIBRILLATION [None]
